FAERS Safety Report 10694779 (Version 1)
Quarter: 2015Q1

REPORT INFORMATION
  Report Type: Spontaneous
  Country: GB (occurrence: GB)
  Receive Date: 20150107
  Receipt Date: 20150107
  Transmission Date: 20150721
  Serious: Yes (Other)
  Sender: FDA-Public Use
  Company Number: GB-TEVA-532613ISR

PATIENT
  Age: 58 Year
  Sex: Female
  Weight: 73 kg

DRUGS (12)
  1. VITAMIN SUPPLEMENT [Concomitant]
     Active Substance: VITAMINS
  2. CITRAMAG [Concomitant]
     Indication: BOWEL PREPARATION
  3. LACTULOSE. [Concomitant]
     Active Substance: LACTULOSE
     Indication: CONSTIPATION
  4. MENOLIEVE FILM-COATED TABLETS [Concomitant]
     Indication: HOT FLUSH
     Dosage: CONTINUED
  5. SERTRALINE [Concomitant]
     Active Substance: SERTRALINE HYDROCHLORIDE
     Dosage: 100 MILLIGRAM DAILY;
  6. SENNA [Concomitant]
     Active Substance: SENNA LEAF\SENNOSIDES\SENNOSIDES A AND B
     Indication: BOWEL PREPARATION
  7. AMITRIPTYLINE [Concomitant]
     Active Substance: AMITRIPTYLINE
     Dosage: 10 MILLIGRAM DAILY; AT NIGHT
  8. ZAPAIN [Concomitant]
     Active Substance: ACETAMINOPHEN\CODEINE PHOSPHATE
     Indication: PAIN IN EXTREMITY
     Dosage: MAXIMUM 2 DOSES 3 TIMES IN A DAY IF NEEDED
  9. OMEPRAZOLE. [Concomitant]
     Active Substance: OMEPRAZOLE
     Dosage: 40 MILLIGRAM DAILY;
  10. ECHINACEA [Concomitant]
     Active Substance: ECHINACEA, UNSPECIFIED
     Dates: start: 20141201
  11. NAPROXEN. [Concomitant]
     Active Substance: NAPROXEN
     Dosage: 1000 MILLIGRAM DAILY;
  12. PREDNISOLONE. [Suspect]
     Active Substance: PREDNISOLONE
     Indication: RED BLOOD CELL SEDIMENTATION RATE INCREASED
     Dosage: 15 MILLIGRAM DAILY;
     Route: 048
     Dates: start: 20141201

REACTIONS (8)
  - Heart rate increased [Not Recovered/Not Resolved]
  - Ear pain [Not Recovered/Not Resolved]
  - Tremor [Not Recovered/Not Resolved]
  - Night sweats [Not Recovered/Not Resolved]
  - Hyperhidrosis [Not Recovered/Not Resolved]
  - Fatigue [Not Recovered/Not Resolved]
  - Thirst [Not Recovered/Not Resolved]
  - Micturition urgency [Not Recovered/Not Resolved]

NARRATIVE: CASE EVENT DATE: 20141201
